FAERS Safety Report 11847850 (Version 1)
Quarter: 2015Q4

REPORT INFORMATION
  Report Type: Report from Study
  Country: US (occurrence: US)
  Receive Date: 20151217
  Receipt Date: 20151217
  Transmission Date: 20160305
  Serious: No
  Sender: FDA-Public Use
  Company Number: GXBR2015US002520

PATIENT
  Sex: Female

DRUGS (1)
  1. OMNITROPE [Suspect]
     Active Substance: SOMATROPIN
     Indication: GROWTH HORMONE DEFICIENCY
     Dosage: 16 U, QD
     Route: 065
     Dates: start: 2013

REACTIONS (3)
  - Abdominal pain upper [Unknown]
  - Arthralgia [Unknown]
  - Incorrect dose administered [Unknown]
